FAERS Safety Report 9624082 (Version 1)
Quarter: 2013Q4

REPORT INFORMATION
  Report Type: Spontaneous
  Country: US (occurrence: US)
  Receive Date: 20131015
  Receipt Date: 20131015
  Transmission Date: 20140711
  Serious: No
  Sender: FDA-Public Use
  Company Number: US-TEVA-437842USA

PATIENT
  Age: 3 Year
  Sex: Female

DRUGS (2)
  1. PROAIR HFA [Suspect]
  2. FLOVENT [Concomitant]

REACTIONS (1)
  - Off label use [Unknown]
